FAERS Safety Report 9549132 (Version 1)
Quarter: 2013Q3

REPORT INFORMATION
  Report Type: Report from Study
  Country: US (occurrence: US)
  Receive Date: 20130924
  Receipt Date: 20130924
  Transmission Date: 20140515
  Serious: Yes (Hospitalization)
  Sender: FDA-Public Use
  Company Number: US-ACTELION-A-US2013-88559

PATIENT
  Age: 43 Year
  Sex: Female

DRUGS (1)
  1. TRACLEER [Suspect]
     Indication: PULMONARY ARTERIAL HYPERTENSION
     Dosage: UNK
     Route: 048

REACTIONS (8)
  - Uterine leiomyoma [Unknown]
  - Haemorrhage [Unknown]
  - Transfusion [Unknown]
  - Dyspnoea [Unknown]
  - Syncope [Unknown]
  - Anaemia [Unknown]
  - Abdominal pain upper [Unknown]
  - Fatigue [Unknown]
